FAERS Safety Report 4986984-1 (Version None)
Quarter: 2006Q2

REPORT INFORMATION
  Report Type: 
  Country: None (occurrence: None)
  Receive Date: 20060501
  Receipt Date: 20060420
  Transmission Date: 20061013
  Serious: Yes (Hospitalization, Other)
  Sender: FDA-Public Use
  Company Number: GB-AVENTIS-200614376GDDC

PATIENT
  Age: 60 Year
  Sex: Female

DRUGS (6)
  1. METRONIDAZOLE [Suspect]
     Indication: URINARY TRACT INFECTION
  2. CEPHALEXIN [Suspect]
     Indication: URINARY TRACT INFECTION
  3. TRIMETHOPRIN [Suspect]
     Indication: URINARY TRACT INFECTION
  4. NIFEDIPINE [Concomitant]
  5. ACEBUTOLOL [Concomitant]
  6. INDAPAMIDE [Concomitant]

REACTIONS (8)
  - DEEP VEIN THROMBOSIS [None]
  - HYPOVOLAEMIC SHOCK [None]
  - INTERNATIONAL NORMALISED RATIO INCREASED [None]
  - MALAISE [None]
  - PAIN [None]
  - PYREXIA [None]
  - RETROPERITONEAL HAEMATOMA [None]
  - URETERIC OBSTRUCTION [None]
